FAERS Safety Report 15884761 (Version 1)
Quarter: 2019Q1

REPORT INFORMATION
  Report Type: Spontaneous
  Country: US (occurrence: US)
  Receive Date: 20190129
  Receipt Date: 20190129
  Transmission Date: 20190417
  Serious: No
  Sender: FDA-Public Use
  Company Number: US-ALLERGAN-1857429US

PATIENT
  Age: 48 Year
  Sex: Female

DRUGS (1)
  1. RHOFADE [Suspect]
     Active Substance: OXYMETAZOLINE HYDROCHLORIDE
     Indication: ROSACEA
     Dosage: UNK, QD
     Route: 061

REACTIONS (2)
  - Application site paraesthesia [Recovered/Resolved]
  - Application site rash [Recovering/Resolving]

NARRATIVE: CASE EVENT DATE: 201812
